FAERS Safety Report 6159851-8 (Version None)
Quarter: 2009Q2

REPORT INFORMATION
  Report Type: 
  Country: None (occurrence: None)
  Receive Date: 20090420
  Receipt Date: 20090408
  Transmission Date: 20091009
  Serious: Yes (Hospitalization)
  Sender: FDA-Public Use
  Company Number: FR-AVENTIS-200911460FR

PATIENT
  Age: 53 Year
  Sex: Female

DRUGS (13)
  1. LASILIX                            /00032601/ [Suspect]
     Indication: DRUG USE FOR UNKNOWN INDICATION
  2. DIANTALVIC [Suspect]
     Indication: DRUG USE FOR UNKNOWN INDICATION
     Route: 048
  3. IMOVANE [Suspect]
     Indication: DRUG USE FOR UNKNOWN INDICATION
     Route: 048
  4. MEDIATOR [Suspect]
     Route: 048
     Dates: start: 20020101, end: 20050321
  5. GLUCOPHAGE [Suspect]
     Route: 048
  6. DIFFU K [Suspect]
     Indication: DRUG USE FOR UNKNOWN INDICATION
     Route: 048
  7. APROVEL [Suspect]
     Route: 048
  8. PREVISCAN                          /00789001/ [Suspect]
     Indication: DRUG USE FOR UNKNOWN INDICATION
     Route: 048
  9. DUPHALAC [Suspect]
     Indication: DRUG USE FOR UNKNOWN INDICATION
     Route: 048
  10. XANAX [Suspect]
     Indication: DRUG USE FOR UNKNOWN INDICATION
     Route: 048
  11. ELISOR [Suspect]
     Indication: DRUG USE FOR UNKNOWN INDICATION
     Route: 048
  12. DEROXAT [Suspect]
     Indication: DEPRESSION
     Route: 048
     Dates: end: 20040101
  13. FENOFIBRATE [Concomitant]

REACTIONS (4)
  - AORTIC VALVE INCOMPETENCE [None]
  - CARDIAC VALVE DISEASE [None]
  - MITRAL VALVE INCOMPETENCE [None]
  - PULMONARY ARTERIAL HYPERTENSION [None]
